FAERS Safety Report 5249332-8 (Version None)
Quarter: 2007Q1

REPORT INFORMATION
  Report Type: 
  Country: None (occurrence: None)
  Receive Date: 20070228
  Receipt Date: 20070223
  Transmission Date: 20070707
  Serious: Yes (Life-Threatening)
  Sender: FDA-Public Use
  Company Number: JP-AVENTIS-200613735JP

PATIENT
  Age: 80 Year
  Sex: Male
  Weight: 80 kg

DRUGS (5)
  1. GLYBURIDE [Suspect]
     Indication: DIABETES MELLITUS
     Route: 048
     Dates: start: 19880805, end: 20061121
  2. OMEPRAL [Suspect]
     Indication: GASTRIC ULCER
     Route: 048
     Dates: start: 20061118, end: 20061124
  3. DIBETOS B [Suspect]
     Indication: DIABETES MELLITUS
     Route: 048
     Dates: start: 19940727, end: 20061121
  4. OMEPRAL [Concomitant]
     Route: 041
     Dates: start: 20061117, end: 20061117
  5. SUCRALFATE [Concomitant]
     Indication: GASTRIC ULCER
     Route: 048
     Dates: start: 20061118

REACTIONS (2)
  - DRUG INTERACTION [None]
  - HYPOGLYCAEMIA [None]
